FAERS Safety Report 16969504 (Version 1)
Quarter: 2019Q4

REPORT INFORMATION
  Report Type: Spontaneous
  Country: US (occurrence: US)
  Receive Date: 20191029
  Receipt Date: 20191029
  Transmission Date: 20200122
  Serious: Yes (Hospitalization)
  Sender: FDA-Public Use
  Company Number: US-TEVA-2019-US-1128843

PATIENT
  Age: 53 Year
  Sex: Female

DRUGS (2)
  1. CYTARABINE. [Suspect]
     Active Substance: CYTARABINE
     Indication: ACUTE MYELOID LEUKAEMIA
     Dosage: SCHEDULED TO RECEIVE 7 DAYS OF INDUCTION CHEMOTHERAPY WITH CYTARABINE AND IDARUBICIN.
     Route: 065
  2. IDARUBICIN [Suspect]
     Active Substance: IDARUBICIN
     Indication: ACUTE MYELOID LEUKAEMIA
     Dosage: SCHEDULED TO RECEIVE 7 DAYS OF INDUCTION CHEMOTHERAPY WITH CYTARABINE AND IDARUBICIN.
     Route: 065

REACTIONS (9)
  - Pulmonary mucormycosis [Recovered/Resolved]
  - Paraesthesia [Unknown]
  - Muscle necrosis [Unknown]
  - Inflammation [Unknown]
  - Pleural effusion [Unknown]
  - Febrile neutropenia [Recovered/Resolved]
  - Jugular vein thrombosis [Unknown]
  - Oedema [Unknown]
  - Mucormycosis [Recovered/Resolved]
